FAERS Safety Report 8220983-1 (Version None)
Quarter: 2012Q1

REPORT INFORMATION
  Report Type: 
  Country: None (occurrence: None)
  Receive Date: 20120307
  Receipt Date: 20101111
  Transmission Date: 20120608
  Serious: No
  Sender: FDA-Public Use
  Company Number: PHHY2010US77374

PATIENT
  Sex: Female

DRUGS (1)
  1. AFINITOR [Suspect]
     Indication: MALIGNANT URINARY TRACT NEOPLASM
     Dosage: , ORAL
     Route: 048
     Dates: start: 20100105, end: 20100701

REACTIONS (2)
  - HEPATIC ENZYME INCREASED [None]
  - NAUSEA [None]
